FAERS Safety Report 10533188 (Version 1)
Quarter: 2014Q4

REPORT INFORMATION
  Report Type: Spontaneous
  Country: FR (occurrence: None)
  Receive Date: 20141017
  Receipt Date: 20141017
  Transmission Date: 20150529
  Serious: Yes (Other)
  Sender: FDA-Public Use
  Company Number: 7326267

PATIENT
  Age: 51 Year
  Sex: Female

DRUGS (2)
  1. LEVOTHYROXINE [Suspect]
     Active Substance: LEVOTHYROXINE
     Indication: HYPOTHYROIDISM
  2. INSULIN (INSULIN) [Concomitant]
     Active Substance: INSULIN NOS

REACTIONS (4)
  - Asphyxia [None]
  - Cough [None]
  - Nasal congestion [None]
  - Sneezing [None]
